FAERS Safety Report 23391784 (Version 1)
Quarter: 2024Q1

REPORT INFORMATION
  Report Type: Spontaneous
  Country: US (occurrence: None)
  Receive Date: 20240110
  Receipt Date: 20240110
  Transmission Date: 20240409
  Serious: Yes (Death)
  Sender: FDA-Public Use
  Company Number: None

PATIENT
  Age: 44 Year
  Sex: Male

DRUGS (2)
  1. MIRTAZAPINE [Suspect]
     Active Substance: MIRTAZAPINE
     Dosage: OTHER ROUTE : BEDTIME ;?
     Route: 050
     Dates: start: 20230428, end: 20230706
  2. OLANZAPINE [Suspect]
     Active Substance: OLANZAPINE
     Dosage: OTHER QUANTITY : QTY30;?FREQUENCY : DAILY;?OTHER ROUTE : BY MOUTH AT BEDTIME ;?
     Route: 050
     Dates: start: 20230526, end: 20230706

REACTIONS (2)
  - Pancreatitis acute [None]
  - Diabetic ketoacidosis [None]

NARRATIVE: CASE EVENT DATE: 20230706
